FAERS Safety Report 16826076 (Version 1)
Quarter: 2019Q3

REPORT INFORMATION
  Report Type: Spontaneous
  Country: US (occurrence: US)
  Receive Date: 20190919
  Receipt Date: 20190919
  Transmission Date: 20191005
  Serious: No
  Sender: FDA-Public Use
  Company Number: US-AUROBINDO-AUR-APL-2018-048918

PATIENT
  Sex: Female

DRUGS (3)
  1. LEXAPRO [Concomitant]
     Active Substance: ESCITALOPRAM OXALATE
     Indication: PRODUCT USED FOR UNKNOWN INDICATION
     Route: 065
  2. ALPRAZOLAM TABLETS USP 1MG [Suspect]
     Active Substance: ALPRAZOLAM
     Indication: PANIC DISORDER
     Dosage: 1 DOSAGE FORM, 3 TIMES A DAY
     Route: 065
     Dates: start: 1989
  3. ALPRAZOLAM TABLETS USP 1MG [Suspect]
     Active Substance: ALPRAZOLAM
     Indication: ANXIETY DISORDER

REACTIONS (2)
  - Product substitution issue [Unknown]
  - Drug ineffective [Unknown]
